FAERS Safety Report 6203110-1 (Version None)
Quarter: 2009Q2

REPORT INFORMATION
  Report Type: 
  Country: None (occurrence: None)
  Receive Date: 20090527
  Receipt Date: 20090518
  Transmission Date: 20091009
  Serious: Yes (Other)
  Sender: FDA-Public Use
  Company Number: BR-JNJFOC-20090505413

PATIENT
  Sex: Male
  Weight: 3.8 kg

DRUGS (2)
  1. DAKTARIN [Suspect]
     Route: 048
  2. DAKTARIN [Suspect]
     Indication: ORAL CANDIDIASIS
     Dosage: AT NIGHT
     Route: 048

REACTIONS (3)
  - ASPHYXIA [None]
  - MEDICATION ERROR [None]
  - VOMITING [None]
